FAERS Safety Report 4686457-X (Version None)
Quarter: 2005Q2

REPORT INFORMATION
  Report Type: 
  Country: None (occurrence: None)
  Receive Date: 20050606
  Receipt Date: 20050525
  Transmission Date: 20051028
  Serious: Yes (Hospitalization)
  Sender: FDA-Public Use
  Company Number: EWC050544183

PATIENT
  Age: 60 Year
  Sex: Male

DRUGS (9)
  1. ZYPREXA [Suspect]
     Indication: SCHIZOPHRENIA
     Dosage: 15 MG
     Dates: end: 20050515
  2. THROMB ASS (ACETYLSALICYLIC ACID) [Concomitant]
  3. PANTOPRAZOLE SODIUM [Concomitant]
  4. TRITACE (RAMIPRIL  /00885601/) [Concomitant]
  5. COR  /GFR/(BISOPROLOL   /00802601/) [Concomitant]
  6. ALDACTONE [Concomitant]
  7. LASIX (FUROSEMIDE  /00032601/) [Concomitant]
  8. NEUROLEPSIN [Concomitant]
  9. ALNA RETARD [Concomitant]

REACTIONS (2)
  - BUNDLE BRANCH BLOCK LEFT [None]
  - MYOCARDIAL INFARCTION [None]
